FAERS Safety Report 9564978 (Version 2)
Quarter: 2013Q4

REPORT INFORMATION
  Report Type: Report from Study
  Country: CA (occurrence: CA)
  Receive Date: 20130930
  Receipt Date: 20131007
  Transmission Date: 20140711
  Serious: Yes (Other)
  Sender: FDA-Public Use
  Company Number: PHHY2013CA107716

PATIENT
  Sex: Female

DRUGS (2)
  1. GILENYA [Suspect]
     Indication: RELAPSING-REMITTING MULTIPLE SCLEROSIS
     Dosage: 0.5 MG, QD
     Route: 048
     Dates: start: 20130917, end: 20130917
  2. CIPRALEX /DEN/ [Interacting]
     Dates: end: 20130913

REACTIONS (5)
  - Drug withdrawal syndrome [Recovering/Resolving]
  - Depressed level of consciousness [Recovering/Resolving]
  - Chills [Recovering/Resolving]
  - Sleep disorder [Recovering/Resolving]
  - Dizziness [Recovering/Resolving]
